FAERS Safety Report 22943476 (Version 2)
Quarter: 2023Q4

REPORT INFORMATION
  Report Type: Report from Study
  Country: US (occurrence: US)
  Receive Date: 20230914
  Receipt Date: 20231025
  Transmission Date: 20240110
  Serious: Yes (Hospitalization)
  Sender: FDA-Public Use
  Company Number: US-OncoResponse, Inc.-2023OR000022

PATIENT
  Age: 73 Year
  Sex: Female

DRUGS (44)
  1. CEMIPLIMAB [Suspect]
     Active Substance: CEMIPLIMAB
     Indication: Neoplasm malignant
     Dosage: 350 MG, TOTAL
     Dates: start: 20230531, end: 20230531
  2. CEMIPLIMAB [Suspect]
     Active Substance: CEMIPLIMAB
     Dosage: 350 MG, TOTAL
     Dates: start: 20230621, end: 20230621
  3. CEMIPLIMAB [Suspect]
     Active Substance: CEMIPLIMAB
     Dosage: 350 MG, TOTAL
     Dates: start: 20230712, end: 20230712
  4. CEMIPLIMAB [Suspect]
     Active Substance: CEMIPLIMAB
     Dosage: 350 MG, TOTAL
     Dates: start: 20230802, end: 20230802
  5. ZOVOSTOTUG [Suspect]
     Active Substance: ZOVOSTOTUG
     Indication: Neoplasm malignant
     Dosage: 450 MG, TOTAL
     Dates: start: 20230531, end: 20230531
  6. ZOVOSTOTUG [Suspect]
     Active Substance: ZOVOSTOTUG
     Dosage: 450 MG, TOTAL
     Dates: start: 20230607, end: 20230607
  7. ZOVOSTOTUG [Suspect]
     Active Substance: ZOVOSTOTUG
     Dosage: 450 MG, TOTAL
     Dates: start: 20230614, end: 20230614
  8. ZOVOSTOTUG [Suspect]
     Active Substance: ZOVOSTOTUG
     Dosage: 450 MG, TOTAL
     Dates: start: 20230621, end: 20230621
  9. ZOVOSTOTUG [Suspect]
     Active Substance: ZOVOSTOTUG
     Dosage: 450 MG, TOTAL
     Dates: start: 20230628, end: 20230628
  10. ZOVOSTOTUG [Suspect]
     Active Substance: ZOVOSTOTUG
     Dosage: 450 MG, TOTAL
     Dates: start: 20230705, end: 20230705
  11. ZOVOSTOTUG [Suspect]
     Active Substance: ZOVOSTOTUG
     Dosage: 450 MG, TOTAL
     Dates: start: 20230712, end: 20230712
  12. ZOVOSTOTUG [Suspect]
     Active Substance: ZOVOSTOTUG
     Dosage: 450 MG, TOTAL
     Dates: start: 20230719, end: 20230719
  13. ZOVOSTOTUG [Suspect]
     Active Substance: ZOVOSTOTUG
     Dosage: 450 MG, TOTAL
     Dates: start: 20230726, end: 20230726
  14. ZOVOSTOTUG [Suspect]
     Active Substance: ZOVOSTOTUG
     Dosage: 450 MG, TOTAL
     Dates: start: 20230802, end: 20230802
  15. ZOVOSTOTUG [Suspect]
     Active Substance: ZOVOSTOTUG
     Dosage: 450 MG, TOTAL
     Dates: start: 20230809, end: 20230809
  16. ZOVOSTOTUG [Suspect]
     Active Substance: ZOVOSTOTUG
     Dosage: 450 MG, TOTAL
     Dates: start: 20230816, end: 20230816
  17. SODIUM CHLORIDE [Concomitant]
     Active Substance: SODIUM CHLORIDE
     Indication: Dehydration
     Dosage: 1000 ML, TOTAL
     Dates: start: 20230802, end: 20230802
  18. SODIUM CHLORIDE [Concomitant]
     Active Substance: SODIUM CHLORIDE
     Dosage: 1000 ML, TOTAL
     Dates: start: 20230809, end: 20230809
  19. SODIUM CHLORIDE [Concomitant]
     Active Substance: SODIUM CHLORIDE
     Dosage: 1000 ML, TOTAL
     Dates: start: 20230816, end: 20230816
  20. SODIUM CHLORIDE [Concomitant]
     Active Substance: SODIUM CHLORIDE
     Dosage: 1000 ML, TOTAL
     Dates: start: 20230823, end: 20230823
  21. MAGNESIUM [Concomitant]
     Active Substance: MAGNESIUM
     Indication: Supplementation therapy
     Dosage: 500 MG, QD
     Dates: start: 20230502
  22. SUCRALFATE [Concomitant]
     Active Substance: SUCRALFATE
     Indication: Gastrooesophageal reflux disease
     Dosage: 1 G, QD
     Dates: start: 20230405
  23. OMEPRAZOLE [Concomitant]
     Active Substance: OMEPRAZOLE
     Indication: Gastrooesophageal reflux disease
     Dosage: 40 MG, QD
     Dates: start: 20230408
  24. POTASSIUM BICARBONATE [Concomitant]
     Active Substance: POTASSIUM BICARBONATE
     Indication: Hypokalaemia
     Dosage: 25 MEQ, QD
     Dates: start: 20230809
  25. FENTANYL [Concomitant]
     Active Substance: FENTANYL\FENTANYL CITRATE
     Indication: Cancer pain
     Dosage: 1 {DF} EVERY 72 HOURS
     Route: 062
     Dates: start: 20230410
  26. ONDANSETRON [Concomitant]
     Active Substance: ONDANSETRON
     Indication: Nausea
     Dosage: 8 MG, AS NECESSARY
     Dates: start: 20230411
  27. METOCLOPRAMIDE HYDROCHLORIDE [Concomitant]
     Active Substance: METOCLOPRAMIDE HYDROCHLORIDE
     Indication: Nausea
     Dosage: UNK
     Dates: start: 20230719
  28. POTASSIUM CHLORIDE [Concomitant]
     Active Substance: POTASSIUM CHLORIDE
     Indication: Supplementation therapy
     Dosage: 20 MEQ, QD
     Dates: start: 20230421, end: 20230809
  29. REPAGLINIDE [Concomitant]
     Active Substance: REPAGLINIDE
     Indication: Diabetes mellitus
     Dosage: 1 MG, AS NECESSARY
     Dates: start: 20230621
  30. ACETAMINOPHEN [Concomitant]
     Active Substance: ACETAMINOPHEN
     Indication: Body temperature increased
     Dosage: 650 MG, TOTAL
     Dates: start: 20230823, end: 20230823
  31. ACETAMINOPHEN AND CODEINE [Concomitant]
     Active Substance: ACETAMINOPHEN\CODEINE PHOSPHATE
     Indication: Cancer pain
     Dosage: 1 {DF}, AS NECESSARY
     Route: 048
     Dates: start: 20220623
  32. LEVOTHYROXINE SODIUM [Concomitant]
     Active Substance: LEVOTHYROXINE SODIUM
     Indication: Hypothyroidism
     Dosage: 150 UG, QD
     Dates: start: 201101
  33. DULOXETINE HYDROCHLORIDE [Concomitant]
     Active Substance: DULOXETINE HYDROCHLORIDE
     Indication: Neuralgia
     Dosage: 20 MG, QD
     Dates: start: 201701
  34. CALCIUM [Concomitant]
     Active Substance: CALCIUM
     Indication: Supplementation therapy
     Dosage: 600 MG, QD
     Dates: start: 201901
  35. PROBIOTIC ACIDOPHILUS [LACTOBACILLUS ACIDOPHILUS] [Concomitant]
     Indication: Supplementation therapy
     Dosage: 250 MG, QD
     Route: 048
     Dates: start: 201901
  36. VITAMIN D3 [Concomitant]
     Active Substance: CHOLECALCIFEROL
     Indication: Supplementation therapy
     Dosage: 2000 [IU], QD
     Dates: start: 201901
  37. CETIRIZINE HCL [Concomitant]
     Active Substance: CETIRIZINE HYDROCHLORIDE
     Indication: Seasonal allergy
     Dosage: 10 MG, QD
     Dates: start: 202101
  38. LOSARTAN POTASSIUM [Concomitant]
     Active Substance: LOSARTAN POTASSIUM
     Indication: Hypertension
     Dosage: 50 MG, QD
     Dates: start: 202101
  39. ACETAMINOPHEN\HYDROCODONE BITARTRATE [Concomitant]
     Active Substance: ACETAMINOPHEN\HYDROCODONE BITARTRATE
     Indication: Cancer pain
     Dosage: 1 {DF}, AS NECESSARY
     Route: 048
     Dates: start: 202111
  40. FENTANYL (12MCG/HR) [Concomitant]
     Indication: Cancer pain
     Dates: start: 20230410
  41. ACETAMINOPHEN-CODEINE (300-30MG) [Concomitant]
     Indication: Cancer pain
     Dates: start: 20220623
  42. PROBIOTIC (GARDEN OF LIFE) [Concomitant]
     Indication: Supplementation therapy
     Dates: start: 201901
  43. HYDROCODONE-ACETAMINOPHEN (5-325MG) [Concomitant]
     Indication: Cancer pain
     Dates: start: 202111
  44. PREDNISONE [Concomitant]
     Active Substance: PREDNISONE
     Indication: Inflammation
     Dates: start: 20230825, end: 20230913

REACTIONS (1)
  - Sepsis [Recovered/Resolved]

NARRATIVE: CASE EVENT DATE: 20230828
